FAERS Safety Report 10612901 (Version 2)
Quarter: 2014Q4

REPORT INFORMATION
  Report Type: Report from Study
  Country: US (occurrence: US)
  Receive Date: 20141127
  Receipt Date: 20141127
  Transmission Date: 20150529
  Serious: Yes (Hospitalization)
  Sender: FDA-Public Use
  Company Number: US-EXELIXIS-CABO-14004898

PATIENT
  Age: 54 Year
  Sex: Female

DRUGS (1)
  1. CABOZANTINIB [Suspect]
     Active Substance: CABOZANTINIB
     Indication: THYROID CANCER
     Dosage: 140 MG, QD
     Route: 048
     Dates: start: 20141003

REACTIONS (12)
  - Vomiting [Recovering/Resolving]
  - Abdominal pain [Unknown]
  - Nausea [Recovering/Resolving]
  - Blister [Unknown]
  - Gastrointestinal infection [Recovering/Resolving]
  - Dysgeusia [Recovering/Resolving]
  - Constipation [Unknown]
  - Vision blurred [Recovering/Resolving]
  - Cystitis [Recovering/Resolving]
  - Oral discomfort [Unknown]
  - Decreased appetite [Unknown]
  - Feeding disorder [Unknown]

NARRATIVE: CASE EVENT DATE: 201411
